FAERS Safety Report 22193283 (Version 1)
Quarter: 2023Q2

REPORT INFORMATION
  Report Type: Spontaneous
  Country: GB (occurrence: GB)
  Receive Date: 20230410
  Receipt Date: 20230410
  Transmission Date: 20230722
  Serious: Yes (Disabling, Other)
  Sender: FDA-Public Use
  Company Number: None

PATIENT
  Age: 29 Year
  Sex: Female
  Weight: 48 kg

DRUGS (6)
  1. HYDROCORTISONE [Suspect]
     Active Substance: HYDROCORTISONE
     Indication: Eczema
     Dosage: 1 DOSAGE FORM, BID, APPLIED TO NECK, CHEST AND ARMS
     Route: 061
     Dates: start: 20210118, end: 20210204
  2. HYDROCORTISONE [Suspect]
     Active Substance: HYDROCORTISONE
     Dosage: 1 DOSAGE FORM, QD
     Route: 061
     Dates: start: 20210118, end: 20210204
  3. MOMETASONE [Suspect]
     Active Substance: MOMETASONE
     Indication: Eczema
     Dosage: TOOK FOR 5 DAYS INITIALLY AND THEN ATTEMPTED TO WEAN OFF BY REDUCING DOSAGE UNTIL STOP 9TH OF APRIL
     Route: 061
     Dates: start: 20210211, end: 20210409
  4. MOMETASONE [Suspect]
     Active Substance: MOMETASONE
     Dosage: UNK
     Route: 061
     Dates: start: 20210211, end: 20210409
  5. EUMOVATE [Suspect]
     Active Substance: CLOBETASONE BUTYRATE
     Indication: Eczema
     Dosage: 1 DOSAGE FORM, BID, APPLIED TO NECK, CHEST AND ARMS
     Route: 061
     Dates: start: 20210118, end: 20210205
  6. EUMOVATE [Suspect]
     Active Substance: CLOBETASONE BUTYRATE
     Dosage: 1 DOSAGE FORM, QD(1 DF, QD (APPLIED TO NECK, CHEST AND ARMS))
     Route: 061
     Dates: start: 20210118, end: 20210205

REACTIONS (13)
  - Skin weeping [Not Recovered/Not Resolved]
  - Erythema [Not Recovered/Not Resolved]
  - Condition aggravated [Not Recovered/Not Resolved]
  - Oedema [Not Recovered/Not Resolved]
  - Insomnia [Not Recovered/Not Resolved]
  - Rash [Not Recovered/Not Resolved]
  - Skin exfoliation [Unknown]
  - Skin fissures [Unknown]
  - Depression [Unknown]
  - Body temperature abnormal [Unknown]
  - Temperature regulation disorder [Unknown]
  - Topical steroid withdrawal reaction [Not Recovered/Not Resolved]
  - Inappropriate schedule of product discontinuation [Unknown]

NARRATIVE: CASE EVENT DATE: 20210409
